FAERS Safety Report 12496730 (Version 1)
Quarter: 2016Q2

REPORT INFORMATION
  Report Type: Other
  Country: DE (occurrence: DE)
  Receive Date: 20160624
  Receipt Date: 20160624
  Transmission Date: 20160815
  Serious: Yes (Other)
  Sender: FDA-Public Use
  Company Number: DE-CIPLA LTD.-2016DE08095

PATIENT

DRUGS (9)
  1. CAPECITABINE. [Suspect]
     Active Substance: CAPECITABINE
     Dosage: UNK
     Route: 065
  2. CAPECITABINE. [Suspect]
     Active Substance: CAPECITABINE
     Indication: GASTRIC CANCER
     Dosage: 2000 MG / STAPLES
     Route: 065
     Dates: start: 20121002, end: 20121002
  3. EPIRUBICIN [Suspect]
     Active Substance: EPIRUBICIN
     Dosage: UNK
     Route: 065
  4. CISPLATIN. [Suspect]
     Active Substance: CISPLATIN
     Indication: GASTRIC CANCER
     Dosage: 96.6 MG / STAPLES.
     Route: 065
     Dates: start: 20121002, end: 20121002
  5. CISPLATIN. [Suspect]
     Active Substance: CISPLATIN
     Dosage: 96.6 MG / STAPLES
     Route: 065
  6. EPIRUBICIN [Suspect]
     Active Substance: EPIRUBICIN
     Dosage: 55.86 MG / STAPLES
     Route: 065
     Dates: start: 20130222, end: 20130222
  7. CAPECITABINE. [Suspect]
     Active Substance: CAPECITABINE
     Dosage: 750 MG / STAPLES
     Route: 065
     Dates: start: 20130223, end: 20130223
  8. CISPLATIN. [Suspect]
     Active Substance: CISPLATIN
     Dosage: 67.05 MG / STAPLES
     Route: 065
     Dates: start: 20130222, end: 20130222
  9. EPIRUBICIN [Suspect]
     Active Substance: EPIRUBICIN
     Indication: GASTRIC CANCER
     Dosage: 80.5 MG / STAPLES
     Route: 065
     Dates: start: 20121002, end: 20121002

REACTIONS (4)
  - Facial bones fracture [Unknown]
  - Fall [Unknown]
  - Creatinine renal clearance decreased [Unknown]
  - Asthenia [Unknown]

NARRATIVE: CASE EVENT DATE: 20121023
